FAERS Safety Report 6898317-4 (Version None)
Quarter: 2010Q3

REPORT INFORMATION
  Report Type: 
  Country: None (occurrence: None)
  Receive Date: 20100802
  Receipt Date: 20071010
  Transmission Date: 20110219
  Serious: No
  Sender: FDA-Public Use
  Company Number: US-PFIZER INC-2007085317

PATIENT
  Age: 80 Year
  Sex: Female

DRUGS (2)
  1. LYRICA [Suspect]
     Indication: DIABETIC NEUROPATHY
     Dates: start: 20070901
  2. CYMBALTA [Concomitant]

REACTIONS (4)
  - FEELING ABNORMAL [None]
  - LIMB INJURY [None]
  - MEMORY IMPAIRMENT [None]
  - PAIN IN EXTREMITY [None]
